FAERS Safety Report 17912641 (Version 3)
Quarter: 2020Q3

REPORT INFORMATION
  Report Type: Spontaneous
  Country: US (occurrence: US)
  Receive Date: 20200618
  Receipt Date: 20200721
  Transmission Date: 20201103
  Serious: Yes (Other)
  Sender: FDA-Public Use
  Company Number: US-SA-2020SA153326

PATIENT

DRUGS (1)
  1. LANTUS SOLOSTAR [Suspect]
     Active Substance: INSULIN GLARGINE
     Indication: TYPE 2 DIABETES MELLITUS
     Dosage: 70 IU, QD
     Route: 065

REACTIONS (7)
  - Arthritis [Unknown]
  - Injection site haemorrhage [Unknown]
  - Fatigue [Unknown]
  - Device operational issue [Unknown]
  - Needle issue [Unknown]
  - Blindness [Unknown]
  - Wrong technique in device usage process [Unknown]
